FAERS Safety Report 5707302-7 (Version None)
Quarter: 2008Q2

REPORT INFORMATION
  Report Type: 
  Country: None (occurrence: None)
  Receive Date: 20080416
  Receipt Date: 20080415
  Transmission Date: 20081010
  Serious: Yes (Life-Threatening, Hospitalization)
  Sender: FDA-Public Use
  Company Number: GB-JNJFOC-20080402334

PATIENT
  Age: 66 Year
  Sex: Male
  Weight: 90 kg

DRUGS (3)
  1. IBUPROFEN [Suspect]
     Indication: PROSTATIC PAIN
     Route: 048
  2. ALBUTEROL [Concomitant]
     Indication: ASTHMA
     Dosage: TWO, TWICE A DAY
     Route: 055
  3. ATROVENT [Concomitant]
     Dosage: TWO TO FOUR TIMES A DAY
     Route: 055

REACTIONS (1)
  - RESPIRATORY ARREST [None]
